FAERS Safety Report 21657085 (Version 2)
Quarter: 2022Q4

REPORT INFORMATION
  Report Type: Spontaneous
  Country: PL (occurrence: PL)
  Receive Date: 20221129
  Receipt Date: 20221201
  Transmission Date: 20230113
  Serious: Yes (Other)
  Sender: FDA-Public Use
  Company Number: PL-MLMSERVICE-20221117-3927961-1

PATIENT
  Age: 29 Year

DRUGS (14)
  1. ADRIAMYCIN [Suspect]
     Active Substance: DOXORUBICIN HYDROCHLORIDE
     Indication: Disease progression
     Dosage: UNK
  2. ADRIAMYCIN [Suspect]
     Active Substance: DOXORUBICIN HYDROCHLORIDE
     Indication: Plasma cell myeloma recurrent
  3. PLATINOL [Suspect]
     Active Substance: CISPLATIN
     Indication: Plasma cell myeloma recurrent
     Dosage: UNK
  4. PLATINOL [Suspect]
     Active Substance: CISPLATIN
     Indication: Disease progression
  5. REVLIMID [Suspect]
     Active Substance: LENALIDOMIDE
     Indication: Plasma cell myeloma recurrent
     Dosage: UNK
  6. REVLIMID [Suspect]
     Active Substance: LENALIDOMIDE
     Indication: Disease progression
  7. ETOPOSIDE [Suspect]
     Active Substance: ETOPOSIDE
     Indication: Plasma cell myeloma recurrent
     Dosage: UNK
  8. ETOPOSIDE [Suspect]
     Active Substance: ETOPOSIDE
     Indication: Disease progression
  9. KYPROLIS [Suspect]
     Active Substance: CARFILZOMIB
     Indication: Plasma cell myeloma recurrent
     Dosage: UNK
  10. KYPROLIS [Suspect]
     Active Substance: CARFILZOMIB
     Indication: Disease progression
  11. CYCLOPHOSPHAMIDE [Suspect]
     Active Substance: CYCLOPHOSPHAMIDE
     Indication: Disease progression
     Dosage: UNK
  12. CYCLOPHOSPHAMIDE [Suspect]
     Active Substance: CYCLOPHOSPHAMIDE
     Indication: Plasma cell myeloma recurrent
  13. DEXAMETHASONE [Suspect]
     Active Substance: DEXAMETHASONE
     Indication: Plasma cell myeloma recurrent
     Dosage: UNK
  14. DEXAMETHASONE [Suspect]
     Active Substance: DEXAMETHASONE
     Indication: Disease progression

REACTIONS (1)
  - Hepatotoxicity [Unknown]
